FAERS Safety Report 7911184-2 (Version None)
Quarter: 2011Q4

REPORT INFORMATION
  Report Type: 
  Country: None (occurrence: None)
  Receive Date: 20111114
  Receipt Date: 20111107
  Transmission Date: 20120403
  Serious: Yes (Hospitalization)
  Sender: FDA-Public Use
  Company Number: US-JNJFOC-20110802362

PATIENT
  Sex: Female
  Weight: 56.7 kg

DRUGS (7)
  1. LEVAQUIN [Suspect]
     Route: 048
     Dates: start: 20100101, end: 20100101
  2. LOTREL [Concomitant]
     Indication: BLOOD PRESSURE
     Route: 048
  3. QUININE SULFATE [Concomitant]
     Indication: MUSCLE SPASMS
     Route: 048
  4. OXYCODONE HCL [Concomitant]
     Indication: PAIN
     Route: 048
  5. TEMAZEPAM [Concomitant]
     Indication: INSOMNIA
     Route: 048
  6. LEVAQUIN [Suspect]
     Indication: CYSTITIS
     Route: 048
     Dates: start: 20101201, end: 20110101
  7. FORTEO [Concomitant]
     Indication: BONE DENSITY DECREASED
     Route: 058

REACTIONS (2)
  - SPINAL COLUMN STENOSIS [None]
  - ROTATOR CUFF SYNDROME [None]
